FAERS Safety Report 10006775 (Version 1)
Quarter: 2014Q1

REPORT INFORMATION
  Report Type: Spontaneous
  Country: US (occurrence: None)
  Receive Date: 20140228
  Receipt Date: 20140228
  Transmission Date: 20141002
  Serious: Yes (Other)
  Sender: FDA-Public Use
  Company Number: 225206

PATIENT
  Sex: Female

DRUGS (1)
  1. PICATO (0.015 %, GEL) [Suspect]
     Indication: ACTINIC KERATOSIS
     Dosage: (1 IN 1 D), TOPICAL, 2 D
     Route: 061

REACTIONS (7)
  - Vision blurred [None]
  - Eye swelling [None]
  - Application site vesicles [None]
  - Application site erythema [None]
  - Drug administered at inappropriate site [None]
  - Incorrect drug administration duration [None]
  - Incorrect drug administration duration [None]
